FAERS Safety Report 4863946-6 (Version None)
Quarter: 2005Q4

REPORT INFORMATION
  Report Type: 
  Country: None (occurrence: None)
  Receive Date: 20051219
  Receipt Date: 20051219
  Transmission Date: 20060501
  Serious: Yes (Life-Threatening)
  Sender: FDA-Public Use
  Company Number: None

PATIENT
  Age: 19 Year
  Sex: Male
  Weight: 81.6475 kg

DRUGS (1)
  1. PAXIL [Suspect]
     Indication: DEPRESSION
     Dosage: 10MG  PER DAY PO
     Route: 048
     Dates: start: 20030912, end: 20031201

REACTIONS (6)
  - ASTHENIA [None]
  - BRAIN DAMAGE [None]
  - DRUG WITHDRAWAL SYNDROME [None]
  - EYE DISORDER [None]
  - FEELING ABNORMAL [None]
  - MENTAL IMPAIRMENT [None]
